FAERS Safety Report 6169236-6 (Version None)
Quarter: 2009Q2

REPORT INFORMATION
  Report Type: 
  Country: None (occurrence: None)
  Receive Date: 20090424
  Receipt Date: 20090417
  Transmission Date: 20091009
  Serious: Yes (Other)
  Sender: FDA-Public Use
  Company Number: OMPQ-PR-0904S-0270

PATIENT
  Age: 60 Year
  Sex: Female

DRUGS (1)
  1. OMNIPAQUE 140 [Suspect]
     Indication: DRUG USE FOR UNKNOWN INDICATION
     Dosage: 35 ML, SINGLE DOSE, EXTRAVASATION
     Dates: start: 20090413, end: 20090413

REACTIONS (2)
  - COMPARTMENT SYNDROME [None]
  - INJECTION SITE EXTRAVASATION [None]
